FAERS Safety Report 5968994-0 (Version None)
Quarter: 2008Q4

REPORT INFORMATION
  Report Type: 
  Country: None (occurrence: None)
  Receive Date: 20081126
  Receipt Date: 20081117
  Transmission Date: 20090506
  Serious: Yes (Hospitalization)
  Sender: FDA-Public Use
  Company Number: US-ELI_LILLY_AND_COMPANY-US200811004501

PATIENT
  Age: 16 Year
  Sex: Male

DRUGS (2)
  1. CYMBALTA [Suspect]
     Dosage: 60 MG, UNK
     Dates: start: 20080817, end: 20081103
  2. DEPAKOTE [Concomitant]
     Indication: BIPOLAR DISORDER
     Dosage: 250 MG, UNK

REACTIONS (1)
  - HEPATIC FAILURE [None]
